FAERS Safety Report 4493056-1 (Version None)
Quarter: 2004Q4

REPORT INFORMATION
  Report Type: 
  Country: None (occurrence: None)
  Receive Date: 20041101
  Receipt Date: 20041018
  Transmission Date: 20050328
  Serious: Yes (Life-Threatening, Hospitalization, Other)
  Sender: FDA-Public Use
  Company Number: 209312

PATIENT
  Age: 66 Year
  Sex: Female

DRUGS (4)
  1. RITUXAN [Suspect]
     Indication: B-CELL LYMPHOMA
     Dosage: 600 MG, QD, INTRAVENOUS
     Route: 042
  2. SOSTRIL (RANITIDINE) [Concomitant]
  3. FENISTIL (DIMETHINDENE MALEATE) [Concomitant]
  4. MARCUMAR [Concomitant]

REACTIONS (9)
  - ABDOMINAL PAIN [None]
  - ACUTE RESPIRATORY FAILURE [None]
  - ANAPHYLACTIC REACTION [None]
  - B-CELL LYMPHOMA [None]
  - CYTOKINE RELEASE SYNDROME [None]
  - GRANULOCYTE COUNT DECREASED [None]
  - HYPOTONIA [None]
  - PYREXIA [None]
  - SHOCK [None]
